FAERS Safety Report 6851065-9 (Version None)
Quarter: 2010Q3

REPORT INFORMATION
  Report Type: 
  Country: None (occurrence: None)
  Receive Date: 20100716
  Receipt Date: 20071211
  Transmission Date: 20110219
  Serious: No
  Sender: FDA-Public Use
  Company Number: US-PFIZER INC-2007090886

PATIENT
  Sex: Female
  Weight: 81.8 kg

DRUGS (4)
  1. CHANTIX [Suspect]
     Indication: SMOKING CESSATION THERAPY
     Dates: start: 20071021
  2. PRIMIDONE [Concomitant]
  3. CRESTOR [Concomitant]
  4. SIMVASTATIN [Concomitant]

REACTIONS (3)
  - ABDOMINAL PAIN [None]
  - INSOMNIA [None]
  - PAIN IN EXTREMITY [None]
